FAERS Safety Report 14974270 (Version 1)
Quarter: 2018Q2

REPORT INFORMATION
  Report Type: Spontaneous
  Country: US (occurrence: US)
  Receive Date: 20180605
  Receipt Date: 20180605
  Transmission Date: 20180711
  Serious: Yes (Other)
  Sender: FDA-Public Use
  Company Number: US-AMGEN-USASP2018074344

PATIENT
  Age: 52 Year
  Sex: Male

DRUGS (5)
  1. ENBREL [Suspect]
     Active Substance: ETANERCEPT
     Dosage: UNK
     Route: 065
  2. METHOTREXATE. [Concomitant]
     Active Substance: METHOTREXATE
     Dosage: UNK
     Dates: start: 201211
  3. METHOTREXATE. [Concomitant]
     Active Substance: METHOTREXATE
     Dosage: UNK
  4. ISONIAZID W/PYRIDOXINE [Concomitant]
     Active Substance: ISONIAZID\PYRIDOXINE
     Dosage: UNK
     Dates: end: 201407
  5. ENBREL [Suspect]
     Active Substance: ETANERCEPT
     Indication: PRODUCT USED FOR UNKNOWN INDICATION
     Dosage: UNK
     Route: 065
     Dates: start: 201502

REACTIONS (7)
  - Therapy partial responder [Unknown]
  - Upper respiratory tract infection [Unknown]
  - Joint stiffness [Unknown]
  - Neuropathy peripheral [Unknown]
  - Liver function test increased [Unknown]
  - Latent tuberculosis [Unknown]
  - Fatigue [Unknown]

NARRATIVE: CASE EVENT DATE: 201309
